FAERS Safety Report 7757171-9 (Version None)
Quarter: 2011Q3

REPORT INFORMATION
  Report Type: 
  Country: None (occurrence: None)
  Receive Date: 20110916
  Receipt Date: 20110902
  Transmission Date: 20111222
  Serious: Yes (Hospitalization, Other)
  Sender: FDA-Public Use
  Company Number: PHHY2011BR78773

PATIENT
  Sex: Male
  Weight: 70 kg

DRUGS (5)
  1. DIOVAN HCT [Suspect]
     Indication: HYPERTENSION
     Dosage: 1 DF (160/12.5MG) DAILY
     Route: 048
     Dates: start: 20070101
  2. GABAPENTIN [Concomitant]
  3. LANSOPRAZOLE [Concomitant]
     Indication: ABDOMINAL DISCOMFORT
     Dosage: 1 DF, UNK
  4. AMOXICILLIN [Concomitant]
  5. INSULIN [Concomitant]
     Indication: DIABETES MELLITUS
     Dosage: 2 DF DAILY
     Route: 023
     Dates: start: 20010101

REACTIONS (2)
  - INFECTION [None]
  - BLOOD PRESSURE INADEQUATELY CONTROLLED [None]
